FAERS Safety Report 13980653 (Version 1)
Quarter: 2017Q3

REPORT INFORMATION
  Report Type: Spontaneous
  Country: CA (occurrence: CA)
  Receive Date: 20170918
  Receipt Date: 20170918
  Transmission Date: 20171128
  Serious: Yes (Other)
  Sender: FDA-Public Use
  Company Number: CA-ENDO PHARMACEUTICALS INC-2017-004954

PATIENT
  Age: 58 Year
  Sex: Female

DRUGS (1)
  1. ADRENALIN [Suspect]
     Active Substance: EPINEPHRINE
     Indication: ANAPHYLACTIC REACTION
     Dosage: 300 MICROGRAM, UNKNOWN
     Route: 042

REACTIONS (3)
  - Electrocardiogram ST segment depression [Recovered/Resolved]
  - Sinus tachycardia [Recovered/Resolved]
  - Product use issue [Recovered/Resolved]
